FAERS Safety Report 10381884 (Version 1)
Quarter: 2014Q3

REPORT INFORMATION
  Report Type: Spontaneous
  Country: JP (occurrence: JP)
  Receive Date: 20140813
  Receipt Date: 20140813
  Transmission Date: 20150326
  Serious: Yes (Hospitalization)
  Sender: FDA-Public Use
  Company Number: JP-VIIV HEALTHCARE LIMITED-B1019008A

PATIENT
  Age: 63 Year
  Sex: Female

DRUGS (6)
  1. ISENTRESS [Concomitant]
     Active Substance: RALTEGRAVIR POTASSIUM
     Indication: ACQUIRED IMMUNODEFICIENCY SYNDROME
     Dosage: 400MG TWICE PER DAY
     Route: 048
     Dates: start: 20140707, end: 20140710
  2. EPZICOM [Suspect]
     Active Substance: ABACAVIR SULFATE\LAMIVUDINE
     Indication: ACQUIRED IMMUNODEFICIENCY SYNDROME
     Dosage: 1IUAX PER DAY
     Route: 048
     Dates: start: 20140707, end: 20140710
  3. MUCOSTA [Concomitant]
     Active Substance: REBAMIPIDE
     Dosage: 100MG THREE TIMES PER DAY
     Route: 048
     Dates: start: 20140425, end: 20140715
  4. ITRIZOLE [Suspect]
     Active Substance: ITRACONAZOLE
     Indication: ORAL CANDIDIASIS
     Dosage: 200MG PER DAY
     Route: 048
     Dates: start: 20140627, end: 20140710
  5. ISENTRESS [Concomitant]
     Active Substance: RALTEGRAVIR POTASSIUM
     Indication: ACQUIRED IMMUNODEFICIENCY SYNDROME
     Dosage: 400MG TWICE PER DAY
     Route: 048
     Dates: start: 20140717
  6. BAKTAR [Concomitant]
     Active Substance: SULFAMETHOXAZOLE\TRIMETHOPRIM
     Indication: INFECTION PROPHYLAXIS
     Dosage: 1IUAX PER DAY
     Route: 048
     Dates: start: 20140324

REACTIONS (3)
  - Drug reaction with eosinophilia and systemic symptoms [Recovering/Resolving]
  - Rash generalised [Recovering/Resolving]
  - Eosinophilia [Recovering/Resolving]

NARRATIVE: CASE EVENT DATE: 20140708
